FAERS Safety Report 6573356-1 (Version None)
Quarter: 2010Q1

REPORT INFORMATION
  Report Type: 
  Country: None (occurrence: None)
  Receive Date: 20100208
  Receipt Date: 20100126
  Transmission Date: 20100710
  Serious: Yes (Other)
  Sender: FDA-Public Use
  Company Number: US-SANOFI-AVENTIS-2009SA009174

PATIENT
  Age: 0 Day
  Sex: Female
  Weight: 3.43 kg

DRUGS (1)
  1. ENOXAPARIN SODIUM [Suspect]
     Route: 064
     Dates: start: 20090728, end: 20091008

REACTIONS (2)
  - DRUG EXPOSURE DURING PREGNANCY [None]
  - FEMUR FRACTURE [None]
